FAERS Safety Report 24163818 (Version 1)
Quarter: 2024Q3

REPORT INFORMATION
  Report Type: Spontaneous
  Country: CN (occurrence: CN)
  Receive Date: 20240801
  Receipt Date: 20240801
  Transmission Date: 20241017
  Serious: Yes (Death, Hospitalization)
  Sender: PAREXEL
  Company Number: CN-SHANGHAI JUNSHI BIOSCIENCES CO., LTD.-CN2024010705

PATIENT

DRUGS (1)
  1. TORIPALIMAB [Suspect]
     Active Substance: TORIPALIMAB
     Indication: Malignant melanoma
     Dosage: 240 MG, ONLY ONCE
     Route: 041
     Dates: start: 20240513, end: 20240513

REACTIONS (2)
  - Death [Fatal]
  - Immune-mediated hepatitis [Unknown]

NARRATIVE: CASE EVENT DATE: 20240601
